FAERS Safety Report 8788159 (Version 2)
Quarter: 2012Q4

REPORT INFORMATION
  Report Type: Report from Study
  Country: DE (occurrence: DE)
  Receive Date: 20120914
  Receipt Date: 20120925
  Transmission Date: 20130627
  Serious: Yes (Other)
  Sender: FDA-Public Use
  Company Number: DE-ASTELLAS-2012EU006641

PATIENT
  Age: 52 Year
  Sex: Male
  Weight: 90 kg

DRUGS (12)
  1. MICAFUNGIN INJECTION [Suspect]
     Indication: PROPHYLAXIS
     Dosage: 50 mg, UID/QD
     Route: 042
     Dates: start: 20120127, end: 20120130
  2. FUROSEMIDE [Concomitant]
     Dosage: UNK
     Route: 065
     Dates: start: 20120126
  3. ARTERENOL [Concomitant]
     Dosage: UNK
     Route: 065
     Dates: start: 20120127
  4. METRONIDAZOL                       /00012501/ [Concomitant]
     Dosage: UNK
     Route: 065
     Dates: start: 20120126
  5. CLOFARABINE [Concomitant]
     Dosage: UNK
     Route: 065
     Dates: start: 20120126, end: 20120130
  6. PERFALGAN [Concomitant]
     Dosage: UNK
     Route: 065
     Dates: start: 20120126
  7. ACICLOVIR [Concomitant]
     Dosage: UNK
     Route: 065
     Dates: start: 20120126
  8. PANTOZOL [Concomitant]
     Dosage: UNK
     Route: 065
     Dates: start: 20120126
  9. NOCTAMIDE [Concomitant]
     Dosage: UNK
     Route: 065
     Dates: start: 20120125
  10. TAVOR /00273201/ [Concomitant]
     Dosage: UNK
     Route: 065
     Dates: start: 20120127
  11. RASBURICASE [Concomitant]
     Dosage: UNK
     Route: 065
     Dates: start: 20120127, end: 20120127
  12. URSOFALK [Concomitant]
     Dosage: UNK
     Route: 065
     Dates: start: 20120126

REACTIONS (1)
  - Lung infiltration [Recovering/Resolving]
